FAERS Safety Report 8520025-4 (Version None)
Quarter: 2012Q3

REPORT INFORMATION
  Report Type: 
  Country: None (occurrence: None)
  Receive Date: 20120719
  Receipt Date: 20120710
  Transmission Date: 20120928
  Serious: No
  Sender: FDA-Public Use
  Company Number: US-PFIZER INC-2012166179

PATIENT
  Sex: Female
  Weight: 86.621 kg

DRUGS (2)
  1. LEVOXYL [Suspect]
     Indication: THYROID DISORDER
     Dosage: 112 UG, 1X/DAY
     Route: 048
     Dates: start: 19980101
  2. LEVOXYL [Suspect]
     Dosage: 112 UG, UNK

REACTIONS (9)
  - NASOPHARYNGITIS [None]
  - DRUG INEFFECTIVE [None]
  - FEELING ABNORMAL [None]
  - DIZZINESS [None]
  - MALAISE [None]
  - MOOD ALTERED [None]
  - FATIGUE [None]
  - COUGH [None]
  - THYROID DISORDER [None]
